FAERS Safety Report 25447536 (Version 1)
Quarter: 2025Q2

REPORT INFORMATION
  Report Type: Report from Study
  Country: IT (occurrence: IT)
  Receive Date: 20250617
  Receipt Date: 20250617
  Transmission Date: 20250716
  Serious: Yes (Hospitalization)
  Sender: MYLAN
  Company Number: None

PATIENT
  Age: 78 Year
  Sex: Male
  Weight: 75 kg

DRUGS (64)
  1. ALLOPURINOL [Interacting]
     Active Substance: ALLOPURINOL
     Indication: Renal hypertension
     Dosage: 300 MILLIGRAM, QD (300MG DAILY)
  2. ALLOPURINOL [Interacting]
     Active Substance: ALLOPURINOL
     Dosage: 300 MILLIGRAM, QD (300MG DAILY)
     Route: 048
  3. ALLOPURINOL [Interacting]
     Active Substance: ALLOPURINOL
     Dosage: 300 MILLIGRAM, QD (300MG DAILY)
     Route: 048
  4. ALLOPURINOL [Interacting]
     Active Substance: ALLOPURINOL
     Dosage: 300 MILLIGRAM, QD (300MG DAILY)
  5. CARBOPLATIN [Suspect]
     Active Substance: CARBOPLATIN
     Indication: Lung adenocarcinoma
     Dates: start: 20240909, end: 20240909
  6. CARBOPLATIN [Suspect]
     Active Substance: CARBOPLATIN
     Route: 042
     Dates: start: 20240909, end: 20240909
  7. CARBOPLATIN [Suspect]
     Active Substance: CARBOPLATIN
     Route: 042
     Dates: start: 20240909, end: 20240909
  8. CARBOPLATIN [Suspect]
     Active Substance: CARBOPLATIN
     Dates: start: 20240909, end: 20240909
  9. KEYTRUDA [Suspect]
     Active Substance: PEMBROLIZUMAB
     Indication: Lung adenocarcinoma
     Dosage: 200 MILLIGRAM, Q3W (200MG EVERY 3 WEEKS IN COMBINATION WITH PEMETREXED AND CARBOPLATIN)
     Dates: start: 20240909, end: 20240909
  10. KEYTRUDA [Suspect]
     Active Substance: PEMBROLIZUMAB
     Dosage: 200 MILLIGRAM, Q3W (200MG EVERY 3 WEEKS IN COMBINATION WITH PEMETREXED AND CARBOPLATIN)
     Route: 042
     Dates: start: 20240909, end: 20240909
  11. KEYTRUDA [Suspect]
     Active Substance: PEMBROLIZUMAB
     Dosage: 200 MILLIGRAM, Q3W (200MG EVERY 3 WEEKS IN COMBINATION WITH PEMETREXED AND CARBOPLATIN)
     Route: 042
     Dates: start: 20240909, end: 20240909
  12. KEYTRUDA [Suspect]
     Active Substance: PEMBROLIZUMAB
     Dosage: 200 MILLIGRAM, Q3W (200MG EVERY 3 WEEKS IN COMBINATION WITH PEMETREXED AND CARBOPLATIN)
     Dates: start: 20240909, end: 20240909
  13. PEMETREXED [Interacting]
     Active Substance: PEMETREXED
     Indication: Lung adenocarcinoma
     Dates: start: 20240909, end: 20240909
  14. PEMETREXED [Interacting]
     Active Substance: PEMETREXED
     Route: 042
     Dates: start: 20240909, end: 20240909
  15. PEMETREXED [Interacting]
     Active Substance: PEMETREXED
     Route: 042
     Dates: start: 20240909, end: 20240909
  16. PEMETREXED [Interacting]
     Active Substance: PEMETREXED
     Dates: start: 20240909, end: 20240909
  17. LEVOTHYROXINE SODIUM [Concomitant]
     Active Substance: LEVOTHYROXINE SODIUM
     Indication: Autoimmune hypothyroidism
     Dosage: 75 MICROGRAM, QD (75?G DAILY)
  18. LEVOTHYROXINE SODIUM [Concomitant]
     Active Substance: LEVOTHYROXINE SODIUM
     Dosage: 75 MICROGRAM, QD (75?G DAILY)
     Route: 048
  19. LEVOTHYROXINE SODIUM [Concomitant]
     Active Substance: LEVOTHYROXINE SODIUM
     Dosage: 75 MICROGRAM, QD (75?G DAILY)
     Route: 048
  20. LEVOTHYROXINE SODIUM [Concomitant]
     Active Substance: LEVOTHYROXINE SODIUM
     Dosage: 75 MICROGRAM, QD (75?G DAILY)
  21. PANTOPRAZOLE [Concomitant]
     Active Substance: PANTOPRAZOLE
     Dosage: 40 MILLIGRAM, QD (40MG DAILY)
  22. PANTOPRAZOLE [Concomitant]
     Active Substance: PANTOPRAZOLE
     Dosage: 40 MILLIGRAM, QD (40MG DAILY)
     Route: 048
  23. PANTOPRAZOLE [Concomitant]
     Active Substance: PANTOPRAZOLE
     Dosage: 40 MILLIGRAM, QD (40MG DAILY)
     Route: 048
  24. PANTOPRAZOLE [Concomitant]
     Active Substance: PANTOPRAZOLE
     Dosage: 40 MILLIGRAM, QD (40MG DAILY)
  25. Rolufta Ellipta [Concomitant]
     Indication: Chronic obstructive pulmonary disease
  26. Rolufta Ellipta [Concomitant]
     Route: 055
  27. Rolufta Ellipta [Concomitant]
     Route: 055
  28. Rolufta Ellipta [Concomitant]
  29. Ezetimibe e simvastatina accord [Concomitant]
     Indication: Hypertension
  30. Ezetimibe e simvastatina accord [Concomitant]
     Route: 048
  31. Ezetimibe e simvastatina accord [Concomitant]
     Route: 048
  32. Ezetimibe e simvastatina accord [Concomitant]
  33. TAMSULOSIN HYDROCHLORIDE [Concomitant]
     Active Substance: TAMSULOSIN HYDROCHLORIDE
     Indication: Benign prostatic hyperplasia
     Dosage: 0.4 MILLIGRAM, QD (0.4MG DAILY)
  34. TAMSULOSIN HYDROCHLORIDE [Concomitant]
     Active Substance: TAMSULOSIN HYDROCHLORIDE
     Dosage: 0.4 MILLIGRAM, QD (0.4MG DAILY)
     Route: 048
  35. TAMSULOSIN HYDROCHLORIDE [Concomitant]
     Active Substance: TAMSULOSIN HYDROCHLORIDE
     Dosage: 0.4 MILLIGRAM, QD (0.4MG DAILY)
     Route: 048
  36. TAMSULOSIN HYDROCHLORIDE [Concomitant]
     Active Substance: TAMSULOSIN HYDROCHLORIDE
     Dosage: 0.4 MILLIGRAM, QD (0.4MG DAILY)
  37. LUMIGAN [Concomitant]
     Active Substance: BIMATOPROST
     Indication: Glaucoma
  38. LUMIGAN [Concomitant]
     Active Substance: BIMATOPROST
     Route: 047
  39. LUMIGAN [Concomitant]
     Active Substance: BIMATOPROST
     Route: 047
  40. LUMIGAN [Concomitant]
     Active Substance: BIMATOPROST
  41. TRULICITY [Concomitant]
     Active Substance: DULAGLUTIDE
     Indication: Type 2 diabetes mellitus
     Dosage: 1.5 MILLIGRAM, QD (1.5MG WEEKLY)
  42. TRULICITY [Concomitant]
     Active Substance: DULAGLUTIDE
     Dosage: 1.5 MILLIGRAM, QD (1.5MG WEEKLY)
     Route: 058
  43. TRULICITY [Concomitant]
     Active Substance: DULAGLUTIDE
     Dosage: 1.5 MILLIGRAM, QD (1.5MG WEEKLY)
     Route: 058
  44. TRULICITY [Concomitant]
     Active Substance: DULAGLUTIDE
     Dosage: 1.5 MILLIGRAM, QD (1.5MG WEEKLY)
  45. METFORMIN HYDROCHLORIDE [Concomitant]
     Active Substance: METFORMIN HYDROCHLORIDE
     Indication: Type 2 diabetes mellitus
     Dosage: 500 MILLIGRAM, QD (500MG DAILY)
  46. METFORMIN HYDROCHLORIDE [Concomitant]
     Active Substance: METFORMIN HYDROCHLORIDE
     Dosage: 500 MILLIGRAM, QD (500MG DAILY)
     Route: 048
  47. METFORMIN HYDROCHLORIDE [Concomitant]
     Active Substance: METFORMIN HYDROCHLORIDE
     Dosage: 500 MILLIGRAM, QD (500MG DAILY)
     Route: 048
  48. METFORMIN HYDROCHLORIDE [Concomitant]
     Active Substance: METFORMIN HYDROCHLORIDE
     Dosage: 500 MILLIGRAM, QD (500MG DAILY)
  49. Perindopril e amlodipina Aurobindo [Concomitant]
     Indication: Hypertension
     Dosage: UNK UNK, QD (4/5MG DAILY)
  50. Perindopril e amlodipina Aurobindo [Concomitant]
     Dosage: UNK UNK, QD (4/5MG DAILY)
     Route: 048
  51. Perindopril e amlodipina Aurobindo [Concomitant]
     Dosage: UNK UNK, QD (4/5MG DAILY)
     Route: 048
  52. Perindopril e amlodipina Aurobindo [Concomitant]
     Dosage: UNK UNK, QD (4/5MG DAILY)
  53. Vitamina d [Concomitant]
  54. Vitamina d [Concomitant]
     Route: 065
  55. Vitamina d [Concomitant]
     Route: 065
  56. Vitamina d [Concomitant]
  57. LANTUS [Concomitant]
     Active Substance: INSULIN GLARGINE
     Indication: Type 2 diabetes mellitus
     Dosage: UNK UNK, QD (12U IN THE MORNING)
  58. LANTUS [Concomitant]
     Active Substance: INSULIN GLARGINE
     Dosage: UNK UNK, QD (12U IN THE MORNING)
     Route: 058
  59. LANTUS [Concomitant]
     Active Substance: INSULIN GLARGINE
     Dosage: UNK UNK, QD (12U IN THE MORNING)
     Route: 058
  60. LANTUS [Concomitant]
     Active Substance: INSULIN GLARGINE
     Dosage: UNK UNK, QD (12U IN THE MORNING)
  61. ERTUGLIFLOZIN [Concomitant]
     Active Substance: ERTUGLIFLOZIN
     Indication: Type 2 diabetes mellitus
     Dosage: 15 MILLIGRAM, QD (15 MG DAILY)
  62. ERTUGLIFLOZIN [Concomitant]
     Active Substance: ERTUGLIFLOZIN
     Dosage: 15 MILLIGRAM, QD (15 MG DAILY)
     Route: 048
  63. ERTUGLIFLOZIN [Concomitant]
     Active Substance: ERTUGLIFLOZIN
     Dosage: 15 MILLIGRAM, QD (15 MG DAILY)
     Route: 048
  64. ERTUGLIFLOZIN [Concomitant]
     Active Substance: ERTUGLIFLOZIN
     Dosage: 15 MILLIGRAM, QD (15 MG DAILY)

REACTIONS (2)
  - Overlap syndrome [Recovering/Resolving]
  - Drug interaction [Unknown]

NARRATIVE: CASE EVENT DATE: 20241003
